FAERS Safety Report 7450751-X (Version None)
Quarter: 2011Q2

REPORT INFORMATION
  Report Type: 
  Country: None (occurrence: None)
  Receive Date: 20110502
  Receipt Date: 20110420
  Transmission Date: 20111010
  Serious: Yes (Death, Other)
  Sender: FDA-Public Use
  Company Number: DE-ELI_LILLY_AND_COMPANY-DE201102004897

PATIENT
  Age: 75 Year
  Sex: Male

DRUGS (12)
  1. SIMVASTATIN [Concomitant]
  2. ALLOPURINOL [Concomitant]
  3. SPIRONOLACTONE [Concomitant]
  4. RAMIPRIL [Concomitant]
  5. INSULIN [Concomitant]
  6. PANTOPRAZOLE SODIUM [Concomitant]
  7. ACETYLDIGOXIN [Concomitant]
  8. ASPIRIN [Concomitant]
  9. CARVEDILOL [Concomitant]
  10. LIPAMIDUM [Concomitant]
  11. CIALIS [Suspect]
     Indication: ERECTILE DYSFUNCTION
     Dosage: 20 MG, OTHER
  12. TORSEMIDE [Concomitant]

REACTIONS (3)
  - CARDIAC FAILURE [None]
  - MYOCARDIAL INFARCTION [None]
  - INTENTIONAL DRUG MISUSE [None]
